FAERS Safety Report 21655469 (Version 1)
Quarter: 2022Q4

REPORT INFORMATION
  Report Type: Spontaneous
  Country: US (occurrence: US)
  Receive Date: 20221129
  Receipt Date: 20221129
  Transmission Date: 20230112
  Serious: No
  Sender: FDA-Public Use
  Company Number: US-AMGEN-USASP2022198578

PATIENT
  Sex: Female

DRUGS (1)
  1. PROLIA [Suspect]
     Active Substance: DENOSUMAB
     Indication: Osteoporosis
     Dosage: 60 MILLIGRAM, Q6MO
     Route: 058
     Dates: start: 2020

REACTIONS (8)
  - Ear disorder [Unknown]
  - Emotional disorder [Unknown]
  - Respiratory tract infection [Unknown]
  - Lichen sclerosus [Unknown]
  - Fungal infection [Unknown]
  - Sinusitis [Unknown]
  - Urinary tract infection [Unknown]
  - Bone pain [Unknown]
